FAERS Safety Report 6907616-9 (Version None)
Quarter: 2010Q3

REPORT INFORMATION
  Report Type: 
  Country: None (occurrence: None)
  Receive Date: 20100802
  Receipt Date: 20100719
  Transmission Date: 20110219
  Serious: Yes (Hospitalization)
  Sender: FDA-Public Use
  Company Number: BVT-000591

PATIENT
  Sex: Male

DRUGS (2)
  1. KINERET [Suspect]
     Indication: SCHNITZLER'S SYNDROME
     Dosage: 100 MG 3X/WEEK SUBCUTANEOUS
     Route: 058
     Dates: start: 20090601, end: 20100609
  2. KINERET [Suspect]
     Indication: SCHNITZLER'S SYNDROME
     Dosage: 100 MG 3X/WEEK SUBCUTANEOUS
     Route: 058
     Dates: start: 20100616

REACTIONS (5)
  - ANAEMIA [None]
  - C-REACTIVE PROTEIN [None]
  - HERPES ZOSTER [None]
  - RENAL FAILURE [None]
  - WHITE BLOOD CELL COUNT INCREASED [None]
